FAERS Safety Report 14689242 (Version 1)
Quarter: 2018Q1

REPORT INFORMATION
  Report Type: Spontaneous
  Country: US (occurrence: US)
  Receive Date: 20180328
  Receipt Date: 20180328
  Transmission Date: 20180509
  Serious: No
  Sender: FDA-Public Use
  Company Number: US-TEVA-2018-US-865962

PATIENT

DRUGS (1)
  1. FLUTICASONE PROPIONATE / SALMETEROL XINOFOATE [Suspect]
     Active Substance: FLUTICASONE PROPIONATE\SALMETEROL XINAFOATE
     Dosage: FLUTICASONE PROPIONATE / SALMETEROL XINOFOATE : 232 MCG / 14 MCG

REACTIONS (2)
  - Product quality issue [Unknown]
  - Drug ineffective [Unknown]
